FAERS Safety Report 18690658 (Version 2)
Quarter: 2021Q4

REPORT INFORMATION
  Report Type: Other
  Country: US (occurrence: None)
  Receive Date: 20210101
  Receipt Date: 20211222
  Transmission Date: 20220303
  Serious: Yes (Hospitalization)
  Sender: FDA-Public Use
  Company Number: US-ROCHE-2742339

PATIENT
  Sex: Male

DRUGS (1)
  1. ESBRIET [Suspect]
     Active Substance: PIRFENIDONE
     Indication: Pulmonary fibrosis
     Dosage: TAKE 3 TABLET(S) BY MOUTH 3 TIMES A DAY
     Route: 048
     Dates: start: 20210111

REACTIONS (1)
  - COVID-19 [Not Recovered/Not Resolved]
